FAERS Safety Report 24760905 (Version 1)
Quarter: 2024Q4

REPORT INFORMATION
  Report Type: Report from Study
  Country: JP (occurrence: JP)
  Receive Date: 20241220
  Receipt Date: 20241220
  Transmission Date: 20250115
  Serious: Yes (Hospitalization)
  Sender: RADIUS PHARM
  Company Number: JP-RADIUS HEALTH INC.-2024JP010415

PATIENT
  Age: 70 Year
  Sex: Male

DRUGS (1)
  1. ABALOPARATIDE [Suspect]
     Active Substance: ABALOPARATIDE
     Indication: Product used for unknown indication
     Dosage: 80 MICROGRAM
     Route: 058
     Dates: start: 20240704, end: 20241117

REACTIONS (1)
  - Metastatic lymphoma [Unknown]

NARRATIVE: CASE EVENT DATE: 20240101
